FAERS Safety Report 11561356 (Version 10)
Quarter: 2016Q3

REPORT INFORMATION
  Report Type: Report from Study
  Country: BR (occurrence: BR)
  Receive Date: 20150928
  Receipt Date: 20160712
  Transmission Date: 20161109
  Serious: Yes (Other)
  Sender: FDA-Public Use
  Company Number: PHHY2015BR065369

PATIENT
  Age: 55 Year
  Sex: Male
  Weight: 52 kg

DRUGS (9)
  1. FUROSEMIDE. [Suspect]
     Active Substance: FUROSEMIDE
     Indication: PERICARDIAL EFFUSION
     Dosage: 2 DF (40MG), QD
     Route: 048
  2. CARVEDILOL. [Concomitant]
     Active Substance: CARVEDILOL
     Indication: PERICARDIAL EFFUSION
     Dosage: 2 DF, BID
     Route: 048
     Dates: start: 201511
  3. SIMVASTATIN. [Suspect]
     Active Substance: SIMVASTATIN
     Indication: PRODUCT USED FOR UNKNOWN INDICATION
     Route: 065
  4. LEVOFLOXACIN. [Concomitant]
     Active Substance: LEVOFLOXACIN
     Indication: PRODUCT USED FOR UNKNOWN INDICATION
     Route: 065
  5. METFORMIN [Suspect]
     Active Substance: METFORMIN HYDROCHLORIDE
     Indication: GLUCOSE TOLERANCE IMPAIRED
     Dosage: 500 MG, QD
     Route: 048
  6. AFINITOR [Suspect]
     Active Substance: EVEROLIMUS
     Indication: NEUROENDOCRINE TUMOUR
     Dosage: 10 MG, QD
     Route: 048
     Dates: start: 201311, end: 201411
  7. SPIRONOLACTONE. [Suspect]
     Active Substance: SPIRONOLACTONE
     Indication: PERICARDIAL EFFUSION
     Dosage: 50 MG, QD
     Route: 048
  8. SANDOSTATIN LAR DEPOT [Suspect]
     Active Substance: OCTREOTIDE ACETATE
     Indication: NEUROENDOCRINE TUMOUR
     Dosage: 30 MG, QMO
     Route: 030
     Dates: start: 201305
  9. AFINITOR [Suspect]
     Active Substance: EVEROLIMUS
     Dosage: 5 MG, QD
     Route: 048
     Dates: start: 201411

REACTIONS (16)
  - Blood potassium abnormal [Unknown]
  - Cardiac disorder [Unknown]
  - Blood sodium abnormal [Unknown]
  - Injection site pain [Recovered/Resolved]
  - Ascites [Not Recovered/Not Resolved]
  - Wound [Recovered/Resolved]
  - Nervousness [Unknown]
  - Pericardial effusion [Recovering/Resolving]
  - Pneumonitis [Recovered/Resolved]
  - Blood urea abnormal [Unknown]
  - Limb discomfort [Recovered/Resolved]
  - Injection site swelling [Recovered/Resolved]
  - Glucose tolerance impaired [Recovering/Resolving]
  - Pericardial disease [Unknown]
  - Renal disorder [Unknown]
  - Gait disturbance [Recovered/Resolved]

NARRATIVE: CASE EVENT DATE: 201311
